FAERS Safety Report 5714762-4 (Version None)
Quarter: 2008Q2

REPORT INFORMATION
  Report Type: 
  Country: None (occurrence: None)
  Receive Date: 20080423
  Receipt Date: 20080416
  Transmission Date: 20081010
  Serious: Yes (Other)
  Sender: FDA-Public Use
  Company Number: CA-BRISTOL-MYERS SQUIBB COMPANY-14077432

PATIENT
  Age: 69 Year
  Sex: Female

DRUGS (6)
  1. ORENCIA [Suspect]
     Indication: RHEUMATOID ARTHRITIS
     Dosage: 4 INFUSIONS TILL EVENT:11DEC07,24DEC,08JAN08,05FEB08 400MG FROM 5FEB08 750MG Q4W FROM DEC 07
     Route: 042
     Dates: start: 20080205
  2. AZATHIOPRINE [Concomitant]
     Dosage: ONGOING
     Route: 048
  3. NAPROXEN [Concomitant]
     Dosage: ONGOING
     Route: 048
  4. HYDROMORPHONE HCL [Concomitant]
     Dosage: GIVEN EVERY 4-6 HRS.
     Route: 048
  5. OMEPRAZOLE [Concomitant]
     Route: 048
  6. ACTONEL [Concomitant]

REACTIONS (3)
  - DEAFNESS [None]
  - PRODUCTIVE COUGH [None]
  - TINNITUS [None]
